FAERS Safety Report 7061996-5 (Version None)
Quarter: 2010Q4

REPORT INFORMATION
  Report Type: 
  Country: None (occurrence: None)
  Receive Date: 20101026
  Receipt Date: 20101018
  Transmission Date: 20110411
  Serious: Yes (Death, Hospitalization)
  Sender: FDA-Public Use
  Company Number: NO-TEVA-251993ISR

PATIENT
  Age: 59 Year
  Sex: Male

DRUGS (6)
  1. MIRTAZAPINE [Suspect]
  2. AMITRIPTYLINE HCL [Concomitant]
  3. ATENOLOL [Concomitant]
  4. ALPRAZOLAM [Concomitant]
  5. ISOSORBIDE MONONITRATE [Concomitant]
  6. BENDROFLUMETHIAZIDE [Concomitant]

REACTIONS (3)
  - DISSEMINATED INTRAVASCULAR COAGULATION [None]
  - MULTI-ORGAN FAILURE [None]
  - SEROTONIN SYNDROME [None]
